FAERS Safety Report 24962427 (Version 2)
Quarter: 2025Q1

REPORT INFORMATION
  Report Type: Spontaneous
  Country: CL (occurrence: CL)
  Receive Date: 20250212
  Receipt Date: 20250224
  Transmission Date: 20250409
  Serious: Yes (Hospitalization)
  Sender: BIOMARIN
  Company Number: CL-BIOMARINAP-CL-2025-163850

PATIENT

DRUGS (1)
  1. BRINEURA [Suspect]
     Active Substance: CERLIPONASE ALFA
     Indication: Neuronal ceroid lipofuscinosis
     Route: 065

REACTIONS (1)
  - Gastrostomy [Recovering/Resolving]

NARRATIVE: CASE EVENT DATE: 20250206
